FAERS Safety Report 8475505-7 (Version None)
Quarter: 2012Q2

REPORT INFORMATION
  Report Type: 
  Country: None (occurrence: None)
  Receive Date: 20120628
  Receipt Date: 20120613
  Transmission Date: 20120825
  Serious: Yes (Hospitalization)
  Sender: FDA-Public Use
  Company Number: US-ROCHE-801592

PATIENT
  Sex: Male

DRUGS (12)
  1. DIGOXIN [Concomitant]
     Indication: ATRIAL FIBRILLATION
  2. TIKOSYN [Concomitant]
     Indication: CARDIAC FAILURE CONGESTIVE
     Route: 048
  3. TORSEMIDE [Suspect]
     Indication: CARDIAC FAILURE CONGESTIVE
     Route: 048
     Dates: start: 20110401, end: 20110617
  4. DIGOXIN [Concomitant]
     Indication: CARDIAC FAILURE CONGESTIVE
     Route: 048
  5. AVAPRO [Concomitant]
     Indication: CARDIAC FAILURE CONGESTIVE
     Dosage: DURATION: 2 YEARS
     Route: 048
     Dates: start: 20090101, end: 20110617
  6. COREG [Concomitant]
     Indication: CARDIAC FAILURE CONGESTIVE
     Route: 048
  7. LUNESTA [Concomitant]
     Indication: INSOMNIA
     Route: 048
  8. DOFETILIDE [Concomitant]
     Route: 048
  9. WARFARIN SODIUM [Suspect]
     Indication: THROMBOSIS PROPHYLAXIS
     Route: 048
     Dates: start: 20101007, end: 20110609
  10. NOVOLOG [Concomitant]
     Indication: DIABETES MELLITUS
     Route: 048
  11. IRBESARTANUM [Concomitant]
     Route: 048
  12. WARFARIN SODIUM [Suspect]
     Route: 048

REACTIONS (7)
  - HYPOVOLAEMIA [None]
  - SYNCOPE [None]
  - LACERATION [None]
  - FALL [None]
  - DIZZINESS [None]
  - DYSPNOEA [None]
  - INCORRECT DOSE ADMINISTERED [None]
